FAERS Safety Report 10271884 (Version 1)
Quarter: 2014Q3

REPORT INFORMATION
  Report Type: Spontaneous
  Country: US (occurrence: US)
  Receive Date: 20140702
  Receipt Date: 20140702
  Transmission Date: 20150326
  Serious: Yes (Hospitalization, Other)
  Sender: FDA-Public Use
  Company Number: PHHY2014US078367

PATIENT
  Age: 48 Year
  Sex: Female

DRUGS (6)
  1. RITONAVIR [Interacting]
     Active Substance: RITONAVIR
     Indication: HIV INFECTION
     Dosage: 100 MG, UNK
     Route: 048
     Dates: start: 201206
  2. TRIAMCINOLONE [Suspect]
     Active Substance: TRIAMCINOLONE
     Indication: RADICULITIS CERVICAL
     Dosage: 40 MG, UNK
     Route: 008
  3. TRIAMCINOLONE [Interacting]
     Active Substance: TRIAMCINOLONE
     Indication: NECK PAIN
  4. EMTRICITABINE W/TENOFOVIR [Concomitant]
     Active Substance: EMTRICITABINE\TENOFOVIR DISOPROXIL
     Indication: HIV INFECTION
     Dosage: 200/300 MG, DAILY
     Dates: start: 201206
  5. ATAZANAVIR [Concomitant]
     Active Substance: ATAZANAVIR
     Indication: HIV INFECTION
     Dosage: 300 MG, DAILY
     Dates: start: 201206
  6. TRIAMCINOLONE [Interacting]
     Active Substance: TRIAMCINOLONE
     Indication: PAIN IN EXTREMITY
     Dosage: 20 MG, UNK

REACTIONS (19)
  - Nausea [Recovering/Resolving]
  - Oesophageal candidiasis [Recovering/Resolving]
  - Secondary immunodeficiency [Recovering/Resolving]
  - Abdominal pain upper [Recovering/Resolving]
  - Gastric ulcer [Recovering/Resolving]
  - Cushing^s syndrome [Recovering/Resolving]
  - Dizziness postural [Recovering/Resolving]
  - Headache [Recovering/Resolving]
  - Anxiety [Unknown]
  - Secondary adrenocortical insufficiency [Recovering/Resolving]
  - Dysgeusia [Recovering/Resolving]
  - Insomnia [Recovering/Resolving]
  - Mood altered [Recovering/Resolving]
  - Drug interaction [Unknown]
  - Swelling face [Recovering/Resolving]
  - Weight increased [Recovering/Resolving]
  - Dizziness [Recovering/Resolving]
  - Herpes simplex serology positive [Unknown]
  - Gastrooesophageal reflux disease [Recovering/Resolving]
